FAERS Safety Report 22645997 (Version 1)
Quarter: 2023Q2

REPORT INFORMATION
  Report Type: Report from Study
  Country: GB (occurrence: GB)
  Receive Date: 20230627
  Receipt Date: 20230627
  Transmission Date: 20230721
  Serious: Yes (Other)
  Sender: FDA-Public Use
  Company Number: GB-002147023-NVSC2023GB135983

PATIENT
  Sex: Female

DRUGS (1)
  1. OFATUMUMAB [Suspect]
     Active Substance: OFATUMUMAB
     Indication: Multiple sclerosis
     Dosage: UNK
     Route: 058
     Dates: start: 20230602

REACTIONS (2)
  - Oesophageal candidiasis [Unknown]
  - Pharyngitis [Unknown]

NARRATIVE: CASE EVENT DATE: 20230612
